FAERS Safety Report 7652663-5 (Version None)
Quarter: 2011Q3

REPORT INFORMATION
  Report Type: 
  Country: None (occurrence: None)
  Receive Date: 20110803
  Receipt Date: 20110721
  Transmission Date: 20111222
  Serious: Yes (Other)
  Sender: FDA-Public Use
  Company Number: US-ELI_LILLY_AND_COMPANY-US201106001232

PATIENT
  Sex: Female
  Weight: 105.67 kg

DRUGS (12)
  1. LEXAPRO [Concomitant]
  2. PULMICORT [Concomitant]
  3. NORVASC [Concomitant]
  4. AMARYL [Concomitant]
  5. ZOCOR [Concomitant]
  6. METFORMIN HCL [Concomitant]
  7. GALANTAMINE HYDROBROMIDE [Concomitant]
  8. ZYPREXA [Suspect]
     Dosage: 10 MG, QD
     Dates: start: 20100714
  9. METOPROLOL TARTRATE [Concomitant]
  10. CLARITIN [Concomitant]
  11. LISINOPRIL [Concomitant]
  12. PRILOSEC [Concomitant]

REACTIONS (4)
  - URINARY TRACT INFECTION ENTEROCOCCAL [None]
  - PULMONARY MASS [None]
  - PULMONARY OEDEMA [None]
  - URINARY TRACT OBSTRUCTION [None]
